FAERS Safety Report 9470853 (Version 1)
Quarter: 2013Q3

REPORT INFORMATION
  Report Type: Report from Study
  Country: BR (occurrence: BR)
  Receive Date: 20130822
  Receipt Date: 20130822
  Transmission Date: 20140515
  Serious: Yes (Other)
  Sender: FDA-Public Use
  Company Number: PHHY2013BR091017

PATIENT
  Sex: Female
  Weight: 65 kg

DRUGS (5)
  1. ACLASTA [Suspect]
     Indication: OSTEOPOROSIS
     Dosage: 5 MG, ANNUALLY
     Route: 042
  2. CALCIUM [Concomitant]
     Indication: BONE DISORDER
     Dosage: 1 DF, DAILY
     Route: 048
  3. CRESTOR [Concomitant]
     Indication: CARDIAC DISORDER
     Dosage: 10 MG (1 TABLET), DAILY
     Route: 048
     Dates: start: 2011
  4. MODURETIC [Concomitant]
     Indication: CARDIAC DISORDER
     Dosage: 25 MG (1 TABLET), DAILY
     Route: 048
     Dates: start: 2003
  5. VITAMIN D [Concomitant]
     Indication: BONE DISORDER
     Dosage: 1 DF, DAILY
     Route: 048
     Dates: start: 2011

REACTIONS (5)
  - Foot fracture [Recovered/Resolved with Sequelae]
  - Arthralgia [Not Recovered/Not Resolved]
  - Lower limb fracture [Recovered/Resolved with Sequelae]
  - Ligament sprain [Recovered/Resolved with Sequelae]
  - Fall [Recovered/Resolved with Sequelae]
